FAERS Safety Report 15113508 (Version 1)
Quarter: 2018Q3

REPORT INFORMATION
  Report Type: Spontaneous
  Country: US (occurrence: US)
  Receive Date: 20180706
  Receipt Date: 20180706
  Transmission Date: 20181010
  Serious: Yes (Hospitalization, Other)
  Sender: FDA-Public Use
  Company Number: US-AMGEN-USASP2018090818

PATIENT
  Sex: Male

DRUGS (2)
  1. ENBREL [Suspect]
     Active Substance: ETANERCEPT
     Dosage: 50 MG, QWK
     Route: 065
  2. ENBREL [Suspect]
     Active Substance: ETANERCEPT
     Indication: PSORIATIC ARTHROPATHY
     Dosage: 50 MG, 2 TIMES/WK
     Route: 065
     Dates: start: 2004

REACTIONS (10)
  - Cervical vertebral fracture [Unknown]
  - Large intestinal haemorrhage [Unknown]
  - Back pain [Unknown]
  - Coronary arterial stent insertion [Unknown]
  - Pneumonia [Unknown]
  - Lung disorder [Unknown]
  - Cerebrovascular accident [Unknown]
  - Idiopathic pulmonary fibrosis [Unknown]
  - Chest pain [Unknown]
  - Infection [Unknown]

NARRATIVE: CASE EVENT DATE: 2014
